FAERS Safety Report 4564787-X (Version None)
Quarter: 2005Q1

REPORT INFORMATION
  Report Type: 
  Country: None (occurrence: None)
  Receive Date: 20050128
  Receipt Date: 20040617
  Transmission Date: 20050727
  Serious: Yes (Hospitalization)
  Sender: FDA-Public Use
  Company Number: JP-MERCK-0406USA01982

PATIENT
  Age: 75 Year
  Sex: Male
  Weight: 55 kg

DRUGS (4)
  1. SINGULAIR [Suspect]
     Indication: ASTHMA
     Route: 048
     Dates: start: 20040201, end: 20040610
  2. BENZBROMARONE [Suspect]
     Route: 065
  3. BERAPROST SODIUM [Concomitant]
     Route: 065
  4. ZANTAC [Concomitant]
     Indication: MALLORY-WEISS SYNDROME
     Route: 048

REACTIONS (1)
  - HAEMOLYTIC URAEMIC SYNDROME [None]
